FAERS Safety Report 23295765 (Version 1)
Quarter: 2023Q4

REPORT INFORMATION
  Report Type: Spontaneous
  Country: US (occurrence: None)
  Receive Date: 20231213
  Receipt Date: 20231213
  Transmission Date: 20240109
  Serious: Yes (Hospitalization)
  Sender: FDA-Public Use
  Company Number: None

PATIENT
  Age: 86 Year
  Sex: Male
  Weight: 77.2 kg

DRUGS (14)
  1. SPRYCEL [Suspect]
     Active Substance: DASATINIB
     Indication: Chronic myeloid leukaemia
     Dosage: FREQUENCY : DAILY;?
     Route: 048
     Dates: start: 20210722, end: 20231212
  2. FUROSEMIDE [Concomitant]
     Active Substance: FUROSEMIDE
  3. ALBUTEROL [Concomitant]
     Active Substance: ALBUTEROL
  4. ALLOPURINOL [Concomitant]
     Active Substance: ALLOPURINOL
  5. AMANTADINE [Concomitant]
     Active Substance: AMANTADINE
  6. CARBIDOPA\LEVODOPA [Concomitant]
     Active Substance: CARBIDOPA\LEVODOPA
  7. ESCITALOPRAM [Concomitant]
     Active Substance: ESCITALOPRAM OXALATE
  8. HydrocodoneAPAP [Concomitant]
  9. LISINOPRIL [Concomitant]
     Active Substance: LISINOPRIL
  10. MIRTAZAPINE [Concomitant]
     Active Substance: MIRTAZAPINE
  11. OXYBUTYNIN [Concomitant]
     Active Substance: OXYBUTYNIN
  12. OXYCODONE [Concomitant]
     Active Substance: OXYCODONE
  13. TAMSULOSIN [Concomitant]
     Active Substance: TAMSULOSIN
  14. TRAZODONE [Concomitant]
     Active Substance: TRAZODONE HYDROCHLORIDE

REACTIONS (6)
  - Pulmonary hypertension [None]
  - Pulmonary oedema [None]
  - Toxicity to various agents [None]
  - Brain natriuretic peptide increased [None]
  - Pleural effusion [None]
  - Right ventricular systolic pressure increased [None]

NARRATIVE: CASE EVENT DATE: 20231212
